FAERS Safety Report 11619063 (Version 1)
Quarter: 2015Q4

REPORT INFORMATION
  Report Type: Spontaneous
  Country: GB (occurrence: GB)
  Receive Date: 20151012
  Receipt Date: 20151012
  Transmission Date: 20160304
  Serious: Yes (Other)
  Sender: FDA-Public Use
  Company Number: GB-TEVA-598973ACC

PATIENT
  Age: 29 Year
  Sex: Male
  Weight: 69.85 kg

DRUGS (1)
  1. MIRTAZAPINE. [Suspect]
     Active Substance: MIRTAZAPINE
     Indication: DEPRESSION
     Route: 048
     Dates: start: 20110501, end: 20150815

REACTIONS (5)
  - Anger [Recovered/Resolved]
  - Mood swings [Recovered/Resolved]
  - Memory impairment [Recovered/Resolved]
  - Lactose intolerance [Not Recovered/Not Resolved]
  - Irritability [Recovered/Resolved]

NARRATIVE: CASE EVENT DATE: 20111001
